FAERS Safety Report 4822588-9 (Version None)
Quarter: 2005Q4

REPORT INFORMATION
  Report Type: 
  Country: None (occurrence: None)
  Receive Date: 20051104
  Receipt Date: 20051024
  Transmission Date: 20060501
  Serious: Yes (Hospitalization)
  Sender: FDA-Public Use
  Company Number: 218842

PATIENT
  Sex: Male
  Weight: 77 kg

DRUGS (11)
  1. MABTHERA(RITUXIMAB) CONC FOR SOLUTION FOR INFUSION [Suspect]
     Indication: CHRONIC LYMPHOCYTIC LEUKAEMIA
     Dosage: 500 MG, INTRAVENOUS
     Route: 042
     Dates: start: 20050609, end: 20050806
  2. FLUDARABINE PHOSPHATE [Suspect]
     Indication: CHRONIC LYMPHOCYTIC LEUKAEMIA
     Dosage: 47 MG, INTRAVENOUS
     Route: 042
     Dates: start: 20050610
  3. CYCLOPHOSPHAMIDE [Suspect]
     Indication: CHRONIC LYMPHOCYTIC LEUKAEMIA
     Dosage: 470 MG
     Dates: start: 20050610, end: 20050806
  4. ALLOPURINOL [Concomitant]
  5. HEPARIN [Concomitant]
  6. PREDNISONE [Concomitant]
  7. KEVATRIL (GRANISETRON HYDROCHLORIDE) [Concomitant]
  8. PENICILLIN [Concomitant]
  9. ZANTIC (RANITDINE) [Concomitant]
  10. DIGIMED (DIGITOXIN) [Concomitant]
  11. RANITIC (RANITIDINE) [Concomitant]

REACTIONS (1)
  - LEUKOPENIA [None]
